FAERS Safety Report 5134672-3 (Version None)
Quarter: 2006Q4

REPORT INFORMATION
  Report Type: 
  Country: None (occurrence: None)
  Receive Date: 20061025
  Receipt Date: 20061016
  Transmission Date: 20070319
  Serious: Yes (Other)
  Sender: FDA-Public Use
  Company Number: DE-GLAXOSMITHKLINE-D0051191A

PATIENT

DRUGS (1)
  1. ESKAZOLE [Suspect]
     Route: 065

REACTIONS (1)
  - HEPATITIS [None]
